FAERS Safety Report 5501584-2 (Version None)
Quarter: 2007Q4

REPORT INFORMATION
  Report Type: 
  Country: None (occurrence: None)
  Receive Date: 20071026
  Receipt Date: 20071026
  Transmission Date: 20080405
  Serious: Yes (Hospitalization, Other)
  Sender: FDA-Public Use
  Company Number: None

PATIENT
  Age: 81 Year
  Sex: Female
  Weight: 78.9259 kg

DRUGS (10)
  1. ACTOS [Suspect]
     Indication: TYPE 2 DIABETES MELLITUS
     Dosage: 1 TABLET DAILY PO
     Route: 048
     Dates: start: 20000101, end: 20071024
  2. METOPROLOL [Concomitant]
  3. ADVICOR [Concomitant]
  4. PLAVIX [Concomitant]
  5. OMPRAZOLE [Concomitant]
  6. ASPIRIN [Concomitant]
  7. FUROSEMIDE [Concomitant]
  8. NORVASC [Concomitant]
  9. LISINOPRIL [Concomitant]
  10. FISH OIL [Concomitant]

REACTIONS (2)
  - ATRIAL FIBRILLATION [None]
  - CORONARY ARTERY DISEASE [None]
